FAERS Safety Report 4949447-5 (Version None)
Quarter: 2006Q1

REPORT INFORMATION
  Report Type: 
  Country: None (occurrence: None)
  Receive Date: 20060321
  Receipt Date: 20060310
  Transmission Date: 20060701
  Serious: Yes (Hospitalization)
  Sender: FDA-Public Use
  Company Number: FR-ROCHE-439800

PATIENT
  Age: 80 Year
  Sex: Female

DRUGS (7)
  1. LOXEN [Suspect]
     Indication: ISCHAEMIA
     Route: 048
     Dates: start: 20060121, end: 20060203
  2. PREVISCAN [Concomitant]
     Dates: start: 20060121
  3. FLECAINIDE ACETATE [Concomitant]
  4. ELISOR [Concomitant]
  5. ARICEPT [Concomitant]
  6. DEROXAT [Concomitant]
  7. DI-ANTALVIC [Concomitant]

REACTIONS (1)
  - CUTANEOUS VASCULITIS [None]
